FAERS Safety Report 5598527-2 (Version None)
Quarter: 2008Q1

REPORT INFORMATION
  Report Type: 
  Country: None (occurrence: None)
  Receive Date: 20080122
  Receipt Date: 20080115
  Transmission Date: 20080703
  Serious: Yes (Other)
  Sender: FDA-Public Use
  Company Number: NL-JNJFOC-20080103718

PATIENT
  Sex: Male

DRUGS (6)
  1. REMICADE [Suspect]
     Dosage: 20 INFUSIONS
     Route: 042
  2. REMICADE [Suspect]
     Dosage: 11 INFUSIONS
     Route: 042
  3. REMICADE [Suspect]
     Indication: CROHN'S DISEASE
     Dosage: 14 INFUSIONS
     Route: 042
  4. PREDNISON [Concomitant]
  5. ASACOL [Concomitant]
  6. LANVIS [Concomitant]

REACTIONS (1)
  - MALIGNANT MELANOMA [None]
